FAERS Safety Report 6763232-3 (Version None)
Quarter: 2010Q2

REPORT INFORMATION
  Report Type: 
  Country: None (occurrence: None)
  Receive Date: 20100610
  Receipt Date: 20100527
  Transmission Date: 20101027
  Serious: Yes (Other)
  Sender: FDA-Public Use
  Company Number: US-ASTRAZENECA-2010SE26240

PATIENT
  Sex: Female

DRUGS (5)
  1. SEROQUEL [Suspect]
     Dosage: 200-400 MG
     Route: 048
     Dates: start: 20061013
  2. LEVOTHYROXINE SODIUM [Concomitant]
     Dosage: 10-137 MCG
     Dates: start: 20061001
  3. HYDROXYZINE PAM [Concomitant]
     Dates: start: 20061101
  4. AMBIEN CR [Concomitant]
     Dosage: 10-12.5 MG
     Dates: start: 20061101
  5. FLUOXETINE HCL [Concomitant]
     Dates: start: 20061201

REACTIONS (4)
  - BLOOD CHOLESTEROL INCREASED [None]
  - HEPATIC STEATOSIS [None]
  - NEPHROPATHY [None]
  - TYPE 2 DIABETES MELLITUS [None]
